FAERS Safety Report 9547361 (Version 1)
Quarter: 2013Q2

REPORT INFORMATION
  Report Type: Spontaneous
  Country: US (occurrence: None)
  Receive Date: 20130606
  Receipt Date: 20130606
  Transmission Date: 20140414
  Serious: Yes (Other)
  Sender: FDA-Public Use
  Company Number: 163-POMAL-13044659

PATIENT
  Age: 71 Year
  Sex: Female
  Weight: 55.79 kg

DRUGS (16)
  1. POMALYST [Suspect]
     Indication: PLASMA CELL MYELOMA
     Dosage: 4 MG, 21 IN 28 D, PO
     Route: 048
     Dates: start: 20130305, end: 20130424
  2. Z-PAK (AZITHROMYCIN) [Concomitant]
  3. PERCOCET (OXYCOCET) [Concomitant]
  4. CITALOPRAM (CITALOPRAM) [Concomitant]
  5. MEGACE (MEGESTROL ACETATE) [Concomitant]
  6. ALLEGRA D (ALLEGRA-D-SLOW RELEASE) [Concomitant]
  7. ZOMETA (ZOLEDRONIC ACID) [Concomitant]
  8. BENADRYL [Concomitant]
  9. DEXAMETHASONE (DEXAMETHASONE) [Concomitant]
  10. HYCODAN (HYDROCODRONE BITARTRATE) [Concomitant]
  11. LEVOFLOXACIN (LEVOFLOXACIN) [Concomitant]
  12. MORPHINE (MORPHINE) [Concomitant]
  13. ONDANSETRON (ONDANSETRON) [Concomitant]
  14. PROCHLORPERAZINE MALEATE (PROCHLORPERAZINE MALEATE) [Concomitant]
  15. PRONTONIX (PANTOPRAZOLE SODIUM) [Concomitant]
  16. NEOSPORIN (NEOSPORIN EYE AND EAR SOLUTION) [Concomitant]

REACTIONS (2)
  - Nausea [None]
  - Sinus headache [None]
